FAERS Safety Report 22084137 (Version 1)
Quarter: 2023Q1

REPORT INFORMATION
  Report Type: Spontaneous
  Country: US (occurrence: None)
  Receive Date: 20230309
  Receipt Date: 20230309
  Transmission Date: 20230417
  Serious: Yes (unspecified)
  Sender: FDA-Public Use
  Company Number: None

PATIENT
  Age: 56 Year
  Sex: Male
  Weight: 92.99 kg

DRUGS (1)
  1. SUBLOCADE [Suspect]
     Active Substance: BUPRENORPHINE
     Indication: Drug use disorder
     Dosage: FREQUENCY : MONTHLY;?
     Route: 058

REACTIONS (7)
  - Abdominal wall wound [None]
  - Injection site reaction [None]
  - Wound drainage [None]
  - Anxiety [None]
  - Nausea [None]
  - Abdominal wall abscess [None]
  - Cellulitis [None]

NARRATIVE: CASE EVENT DATE: 20230309
